FAERS Safety Report 5734502-2 (Version None)
Quarter: 2008Q2

REPORT INFORMATION
  Report Type: 
  Country: None (occurrence: None)
  Receive Date: 20080508
  Receipt Date: 20080508
  Transmission Date: 20081010
  Serious: No
  Sender: FDA-Public Use
  Company Number: None

PATIENT
  Age: 29 Year
  Sex: Female
  Weight: 65.7716 kg

DRUGS (1)
  1. CETYLPYRIDINIUM CHLORIDE 0.07% CREST [Suspect]
     Indication: DENTAL DISORDER PROPHYLAXIS
     Dates: start: 20071201, end: 20080201

REACTIONS (5)
  - DYSGEUSIA [None]
  - GLOSSODYNIA [None]
  - SWOLLEN TONGUE [None]
  - TONGUE DISCOLOURATION [None]
  - TOOTH DISCOLOURATION [None]
